FAERS Safety Report 11849467 (Version 1)
Quarter: 2015Q4

REPORT INFORMATION
  Report Type: Spontaneous
  Country: FR (occurrence: FR)
  Receive Date: 20151218
  Receipt Date: 20151218
  Transmission Date: 20160305
  Serious: Yes (Hospitalization, Other)
  Sender: FDA-Public Use
  Company Number: FR-ASTRAZENECA-2015SF26629

PATIENT
  Age: 32161 Day
  Sex: Female

DRUGS (11)
  1. PREVISCAN [Interacting]
     Active Substance: FLUINDIONE
     Route: 065
  2. VALSARTAN. [Concomitant]
     Active Substance: VALSARTAN
  3. PROZAC [Concomitant]
     Active Substance: FLUOXETINE HYDROCHLORIDE
  4. CIFLOX [Interacting]
     Active Substance: CIPROFLOXACIN
     Indication: BRONCHITIS
     Route: 048
     Dates: start: 20151106, end: 20151115
  5. TRIFLUCAN [Interacting]
     Active Substance: FLUCONAZOLE
     Indication: BRONCHITIS
     Route: 048
     Dates: start: 20151106, end: 20151115
  6. BISOPROLOL [Concomitant]
     Active Substance: BISOPROLOL
  7. IMOVANE [Concomitant]
     Active Substance: ZOPICLONE
  8. DOLIPRANE [Concomitant]
     Active Substance: ACETAMINOPHEN
  9. ALPRAZOLAM. [Concomitant]
     Active Substance: ALPRAZOLAM
  10. CRESTOR [Suspect]
     Active Substance: ROSUVASTATIN CALCIUM
     Route: 048
     Dates: end: 20151116
  11. CORDARONE [Concomitant]
     Active Substance: AMIODARONE HYDROCHLORIDE

REACTIONS (7)
  - Contusion [Unknown]
  - Activated partial thromboplastin time prolonged [Unknown]
  - Drug interaction [Recovered/Resolved]
  - Bronchitis [Unknown]
  - Prothrombin time shortened [Recovered/Resolved]
  - Fall [Unknown]
  - Jaundice cholestatic [Unknown]

NARRATIVE: CASE EVENT DATE: 20151114
